FAERS Safety Report 11117926 (Version 1)
Quarter: 2015Q2

REPORT INFORMATION
  Report Type: Spontaneous
  Country: DO (occurrence: US)
  Receive Date: 20150518
  Receipt Date: 20150518
  Transmission Date: 20150821
  Serious: No
  Sender: FDA-Public Use
  Company Number: DO-AMGEN-USASP2015045566

PATIENT
  Age: 25 Year
  Sex: Female

DRUGS (1)
  1. ENBREL [Suspect]
     Active Substance: ETANERCEPT
     Indication: PSORIATIC ARTHROPATHY
     Dosage: 50 MG, EVERY 9 DAYS
     Route: 065
     Dates: start: 20131102

REACTIONS (2)
  - Feeling abnormal [Not Recovered/Not Resolved]
  - Incorrect product storage [Not Recovered/Not Resolved]
